FAERS Safety Report 6212337-4 (Version None)
Quarter: 2009Q2

REPORT INFORMATION
  Report Type: 
  Country: None (occurrence: None)
  Receive Date: 20090529
  Receipt Date: 20090513
  Transmission Date: 20091009
  Serious: Yes (Hospitalization)
  Sender: FDA-Public Use
  Company Number: 2009001465

PATIENT
  Age: 47 Year
  Sex: Female

DRUGS (15)
  1. ERLOTINIB(ERLOTINIB) (TABLET) (ERLOTINIB) [Suspect]
     Indication: PANCREATIC CARCINOMA METASTATIC
     Dosage: 50 MG, QD, ORAL
     Route: 048
     Dates: start: 20090427, end: 20090101
  2. ERLOTINIB(ERLOTINIB) (TABLET) (ERLOTINIB) [Suspect]
     Indication: PANCREATIC CARCINOMA METASTATIC
     Dosage: 50 MG, QD, ORAL
     Route: 048
     Dates: start: 20090330, end: 20090412
  3. ERLOTINIB(ERLOTINIB) (TABLET) (ERLOTINIB) [Suspect]
     Indication: PANCREATIC CARCINOMA METASTATIC
     Dosage: 50 MG, QD, ORAL
     Route: 048
     Dates: start: 20090421, end: 20090424
  4. GEMCITABINE [Suspect]
     Dates: start: 20090320, end: 20090320
  5. GEMCITABINE [Suspect]
     Dates: start: 20090421, end: 20090427
  6. BENZYDAMINE HCL [Concomitant]
  7. FAMOTIDINE [Concomitant]
  8. CLIOQUINOL AND HYDROCORTISONE CREAM [Concomitant]
  9. LOPERAMIDE HCL [Concomitant]
  10. LYSOZYME CHLORIDE [Concomitant]
  11. MAXOLON [Concomitant]
  12. MORPHINE SULPHATE SYRUP [Concomitant]
  13. MORPHINE SULFATE INJ [Concomitant]
  14. PREGABALIN [Concomitant]
  15. CHLORPHENIRAMINE MALEATE [Concomitant]

REACTIONS (17)
  - ABDOMINAL DISTENSION [None]
  - ABDOMINAL PAIN [None]
  - ACTIVATED PARTIAL THROMBOPLASTIN TIME PROLONGED [None]
  - ALANINE AMINOTRANSFERASE INCREASED [None]
  - ANHEDONIA [None]
  - ASPARTATE AMINOTRANSFERASE INCREASED [None]
  - BLOOD ALKALINE PHOSPHATASE INCREASED [None]
  - BLOOD BILIRUBIN UNCONJUGATED INCREASED [None]
  - BLOOD LACTATE DEHYDROGENASE INCREASED [None]
  - DECREASED APPETITE [None]
  - DEPRESSION [None]
  - GAMMA-GLUTAMYLTRANSFERASE INCREASED [None]
  - HYPOPHAGIA [None]
  - NAUSEA [None]
  - PROTHROMBIN TIME PROLONGED [None]
  - SUICIDE ATTEMPT [None]
  - VOMITING [None]
